FAERS Safety Report 5000693-4 (Version None)
Quarter: 2006Q2

REPORT INFORMATION
  Report Type: 
  Country: None (occurrence: None)
  Receive Date: 20060512
  Receipt Date: 20060504
  Transmission Date: 20061013
  Serious: Yes (Hospitalization, Other)
  Sender: FDA-Public Use
  Company Number: US-AVENTIS-200614074US

PATIENT
  Sex: Male

DRUGS (1)
  1. KETEK [Suspect]
     Route: 048
     Dates: start: 20060201

REACTIONS (4)
  - AORTIC DISSECTION [None]
  - ASTHENIA [None]
  - GASTRIC MUCOSAL HYPERTROPHY [None]
  - RENAL FAILURE ACUTE [None]
